FAERS Safety Report 10687372 (Version 1)
Quarter: 2015Q1

REPORT INFORMATION
  Report Type: Spontaneous
  Country: CN (occurrence: CN)
  Receive Date: 20150102
  Receipt Date: 20150102
  Transmission Date: 20150720
  Serious: Yes (Other)
  Sender: FDA-Public Use
  Company Number: PHHY2014CN168929

PATIENT
  Age: 10 Year
  Sex: Male
  Weight: 38 kg

DRUGS (1)
  1. CICLOSPORIN [Suspect]
     Active Substance: CYCLOSPORINE
     Indication: PRODUCT USED FOR UNKNOWN INDICATION
     Route: 064

REACTIONS (9)
  - Proteinuria [Unknown]
  - Renal hypoplasia [Unknown]
  - Developmental delay [Unknown]
  - Tubulointerstitial nephritis [Unknown]
  - Kidney small [Unknown]
  - Renal impairment [Unknown]
  - Foetal exposure during pregnancy [Unknown]
  - Renal failure [Unknown]
  - Growth retardation [Unknown]
